FAERS Safety Report 5269370-9 (Version None)
Quarter: 2007Q1

REPORT INFORMATION
  Report Type: 
  Country: None (occurrence: None)
  Receive Date: 20070319
  Receipt Date: 20070307
  Transmission Date: 20070707
  Serious: Yes (Other)
  Sender: FDA-Public Use
  Company Number: IE-PFIZER INC-2007018701

PATIENT
  Age: 72 Year
  Sex: Male

DRUGS (1)
  1. LYRICA [Suspect]
     Indication: MYALGIA
     Route: 048

REACTIONS (6)
  - CARDIOMYOPATHY [None]
  - HEART RATE INCREASED [None]
  - HYPOTENSION [None]
  - METABOLIC FUNCTION TEST ABNORMAL [None]
  - OEDEMA PERIPHERAL [None]
  - WEIGHT INCREASED [None]
